FAERS Safety Report 21232513 (Version 1)
Quarter: 2022Q3

REPORT INFORMATION
  Report Type: Report from Study
  Country: DE (occurrence: None)
  Receive Date: 20220819
  Receipt Date: 20220819
  Transmission Date: 20221027
  Serious: No
  Sender: FDA-Public Use
  Company Number: DE-IQVIA-20052700802621001_209

PATIENT
  Age: 51 Year
  Sex: Female
  Weight: 71 kg

DRUGS (2)
  1. EVOBRUTINIB [Suspect]
     Active Substance: EVOBRUTINIB
     Indication: Relapsing multiple sclerosis
     Route: 048
     Dates: start: 20210928, end: 20211111
  2. LEVOTHYROXINE [Concomitant]
     Active Substance: LEVOTHYROXINE
     Indication: Hypothyroidism
     Route: 048

REACTIONS (1)
  - Alanine aminotransferase increased [Recovered/Resolved]

NARRATIVE: CASE EVENT DATE: 20211109
